FAERS Safety Report 5584501-9 (Version None)
Quarter: 2008Q1

REPORT INFORMATION
  Report Type: 
  Country: None (occurrence: None)
  Receive Date: 20080108
  Receipt Date: 20080103
  Transmission Date: 20080703
  Serious: Yes (Other)
  Sender: FDA-Public Use
  Company Number: CN-BRISTOL-MYERS SQUIBB COMPANY-14029078

PATIENT
  Age: 37 Year
  Sex: Male

DRUGS (1)
  1. BARACLUDE [Suspect]
     Indication: HEPATITIS B VIRUS
     Dates: start: 20070801

REACTIONS (6)
  - ASCITES [None]
  - B-CELL LYMPHOMA [None]
  - GENERALISED OEDEMA [None]
  - PERICARDIAL EFFUSION [None]
  - PLEURAL EFFUSION [None]
  - PULMONARY HYPERTENSION [None]
